FAERS Safety Report 6837408-0 (Version None)
Quarter: 2010Q3

REPORT INFORMATION
  Report Type: 
  Country: None (occurrence: None)
  Receive Date: 20100713
  Receipt Date: 20070512
  Transmission Date: 20110219
  Serious: No
  Sender: FDA-Public Use
  Company Number: US-PFIZER INC-2007038294

PATIENT
  Sex: Female
  Weight: 95.7 kg

DRUGS (3)
  1. CHANTIX [Suspect]
     Indication: SMOKING CESSATION THERAPY
     Dates: start: 20070506
  2. THIAZIDES [Concomitant]
  3. VITAMINS [Concomitant]

REACTIONS (1)
  - DIZZINESS [None]
